FAERS Safety Report 7331889-4 (Version None)
Quarter: 2011Q1

REPORT INFORMATION
  Report Type: 
  Country: None (occurrence: None)
  Receive Date: 20110304
  Receipt Date: 20100104
  Transmission Date: 20110831
  Serious: No
  Sender: FDA-Public Use
  Company Number: US-PFIZER INC-2009295020

PATIENT
  Sex: Male
  Weight: 104.3 kg

DRUGS (4)
  1. CAVERJECT IMPULSE [Suspect]
     Indication: ERECTILE DYSFUNCTION
     Dosage: 20 UG, 2 TIMES A WEEK
     Dates: start: 20060101
  2. LASIX [Concomitant]
     Dosage: 40 MG, 2X/DAY
  3. METFORMIN [Concomitant]
     Dosage: 500 MG, UNK
  4. GLIPIZIDE [Concomitant]
     Indication: DIABETES MELLITUS
     Dosage: 10 MG, UNK

REACTIONS (1)
  - DRUG INEFFECTIVE [None]
